FAERS Safety Report 9249877 (Version 1)
Quarter: 2013Q2

REPORT INFORMATION
  Report Type: Spontaneous
  Country: IT (occurrence: IT)
  Receive Date: 20130423
  Receipt Date: 20130423
  Transmission Date: 20140414
  Serious: Yes (Other)
  Sender: FDA-Public Use
  Company Number: IT-MYLANLABS-2013S1008093

PATIENT
  Age: 77 Year
  Sex: Female
  Weight: 73 kg

DRUGS (3)
  1. IRINOTECAN HYDROCHLORIDE TRIHYDRATE [Suspect]
     Indication: COLON CANCER
     Dosage: CYCLIC
     Route: 042
     Dates: start: 20130319
  2. IRINOTECAN HYDROCHLORIDE TRIHYDRATE [Suspect]
     Indication: COLON CANCER
     Dosage: CYCLIC
     Route: 042
     Dates: start: 20130319
  3. IRINOTECAN HYDROCHLORIDE TRIHYDRATE [Suspect]
     Indication: COLON CANCER
     Dosage: CYCLIC
     Route: 042
     Dates: start: 20130305, end: 20130305

REACTIONS (4)
  - Erythema [Recovered/Resolved]
  - Face oedema [Recovered/Resolved]
  - Skin ulcer [Recovered/Resolved]
  - Necrotising panniculitis [Recovered/Resolved]
